FAERS Safety Report 5956369-X (Version None)
Quarter: 2008Q4

REPORT INFORMATION
  Report Type: 
  Country: None (occurrence: None)
  Receive Date: 20081118
  Receipt Date: 20081111
  Transmission Date: 20090506
  Serious: Yes (Other)
  Sender: FDA-Public Use
  Company Number: JP-AVENTIS-200813507JP

PATIENT
  Age: 48 Year
  Sex: Male

DRUGS (3)
  1. DAONIL [Suspect]
     Dates: start: 20081014, end: 20081021
  2. DAONIL [Suspect]
     Dates: start: 20081021, end: 20081027
  3. DAONIL [Suspect]
     Dates: start: 20081027

REACTIONS (1)
  - VISUAL ACUITY REDUCED [None]
